FAERS Safety Report 8343149-3 (Version None)
Quarter: 2012Q2

REPORT INFORMATION
  Report Type: 
  Country: None (occurrence: None)
  Receive Date: 20120508
  Receipt Date: 20120502
  Transmission Date: 20120825
  Serious: Yes (Hospitalization)
  Sender: FDA-Public Use
  Company Number: FR-PFIZER INC-2012107252

PATIENT
  Age: 32 Year
  Sex: Female

DRUGS (5)
  1. SOLU-MEDROL [Suspect]
     Indication: PARAESTHESIA
     Dosage: 1 G, 1X/DAY
     Route: 042
     Dates: start: 20120116, end: 20120120
  2. DIANE [Suspect]
     Dosage: UNK
     Route: 048
     Dates: end: 20120126
  3. LEVOTHYROXINE SODIUM [Concomitant]
     Route: 048
  4. NEO-MERCAZOLE TAB [Concomitant]
     Dosage: UNK
     Route: 048
  5. AMITRIPTYLINE HCL [Concomitant]

REACTIONS (1)
  - PULMONARY EMBOLISM [None]
